FAERS Safety Report 6426215-9 (Version None)
Quarter: 2009Q4

REPORT INFORMATION
  Report Type: 
  Country: None (occurrence: None)
  Receive Date: 20091104
  Receipt Date: 20091029
  Transmission Date: 20100525
  Serious: Yes (Hospitalization)
  Sender: FDA-Public Use
  Company Number: JP-JNJFOC-20090601887

PATIENT
  Sex: Female
  Weight: 36 kg

DRUGS (38)
  1. ITRIZOLE [Suspect]
     Route: 041
     Dates: start: 20090514, end: 20090526
  2. ITRIZOLE [Suspect]
     Indication: BRONCHOPULMONARY ASPERGILLOSIS
     Route: 041
     Dates: start: 20090514, end: 20090526
  3. METHYLPREDNISOLONE 4MG TAB [Suspect]
     Indication: INTERSTITIAL LUNG DISEASE
     Route: 048
     Dates: start: 20090525
  4. METHYLPREDNISOLONE SODIUM SUCCINATE [Suspect]
     Indication: INTERSTITIAL LUNG DISEASE
     Route: 041
     Dates: start: 20090520, end: 20090524
  5. ITRIZOLE [Concomitant]
     Route: 048
     Dates: start: 20090527, end: 20090528
  6. ARICEPT [Concomitant]
     Route: 048
     Dates: start: 20090114
  7. ARICEPT [Concomitant]
     Indication: DEMENTIA ALZHEIMER'S TYPE
     Route: 048
     Dates: start: 20090114
  8. POLLAKISU [Concomitant]
     Route: 048
     Dates: start: 20090114
  9. POLLAKISU [Concomitant]
     Indication: NEUROGENIC BLADDER
     Route: 048
     Dates: start: 20090114
  10. LASIX [Concomitant]
     Indication: HYPERTENSION
     Route: 048
     Dates: start: 20090114, end: 20090519
  11. DEPAS [Concomitant]
     Indication: INSOMNIA
     Route: 048
     Dates: start: 20090111, end: 20090522
  12. BROTIZOLAM [Concomitant]
     Route: 048
     Dates: start: 20090111
  13. BROTIZOLAM [Concomitant]
     Indication: INSOMNIA
     Route: 048
     Dates: start: 20090111
  14. MUCOSTA [Concomitant]
     Route: 048
     Dates: start: 20090121
  15. MUCOSTA [Concomitant]
     Indication: PROPHYLAXIS
     Route: 048
     Dates: start: 20090121
  16. RISPERDAL [Concomitant]
     Indication: SCHIZOPHRENIA
     Route: 048
     Dates: start: 20090123, end: 20090522
  17. MUCODYNE [Concomitant]
     Indication: PRODUCTIVE COUGH
     Route: 048
     Dates: start: 20090514, end: 20090526
  18. MUCODYNE [Concomitant]
     Route: 048
     Dates: start: 20090527
  19. GLUCONSAN K [Concomitant]
     Indication: HYPOKALAEMIA
     Route: 048
     Dates: start: 20090515
  20. PREDNISOLONE [Concomitant]
     Indication: INTERSTITIAL LUNG DISEASE
     Route: 048
     Dates: start: 20090108
  21. PARIET [Concomitant]
     Indication: REFLUX OESOPHAGITIS
     Route: 048
     Dates: start: 20090523, end: 20090528
  22. TANATRIL [Concomitant]
     Indication: PROPHYLAXIS
     Route: 048
     Dates: start: 20090523
  23. SYMMETREL [Concomitant]
     Indication: PROPHYLAXIS
     Route: 048
     Dates: start: 20090523
  24. PLETAL [Concomitant]
     Indication: PROPHYLAXIS
     Route: 048
     Dates: start: 20090523
  25. VANCOMYCIN HYDROCHLORIDE [Concomitant]
     Indication: URINARY TRACT INFECTION
     Route: 042
     Dates: start: 20090518, end: 20090521
  26. GLUCOSE [Concomitant]
     Indication: DEHYDRATION
     Route: 041
     Dates: start: 20090525
  27. URSO 250 [Concomitant]
     Route: 048
     Dates: start: 20090205, end: 20090528
  28. URSO 250 [Concomitant]
     Indication: CHOLELITHIASIS
     Route: 048
     Dates: start: 20090205, end: 20090528
  29. MIXED AMINO ACID CARBOHYDRATE ELECTROLYTE VITAMIN COMBINED DRUG [Concomitant]
     Route: 041
     Dates: start: 20090518
  30. MIXED AMINO ACID CARBOHYDRATE ELECTROLYTE VITAMIN COMBINED DRUG [Concomitant]
     Route: 041
     Dates: start: 20090518
  31. MIXED AMINO ACID CARBOHYDRATE ELECTROLYTE VITAMIN COMBINED DRUG [Concomitant]
     Indication: NUTRITIONAL SUPPORT
     Route: 041
     Dates: start: 20090518
  32. DORIPENEM HYDRATE [Concomitant]
     Indication: DRUG USE FOR UNKNOWN INDICATION
     Route: 065
     Dates: start: 20090505, end: 20090507
  33. ISEPAMICIN [Concomitant]
     Indication: DRUG USE FOR UNKNOWN INDICATION
     Route: 065
     Dates: start: 20090507, end: 20090511
  34. PIPERACILLIN [Concomitant]
     Indication: DRUG USE FOR UNKNOWN INDICATION
     Route: 065
     Dates: start: 20090508, end: 20090511
  35. CARBOCISTEINE [Concomitant]
     Indication: PRODUCTIVE COUGH
     Route: 065
     Dates: start: 20090514
  36. POLAPREZINC [Concomitant]
     Route: 065
  37. LANSOPRAZOLE [Concomitant]
     Route: 065
  38. AMBROXOL HYDROCHLORIDE [Concomitant]
     Route: 065

REACTIONS (6)
  - C-REACTIVE PROTEIN INCREASED [None]
  - DRUG HYPERSENSITIVITY [None]
  - HYPOXIA [None]
  - INTERSTITIAL LUNG DISEASE [None]
  - PYREXIA [None]
  - WHITE BLOOD CELL COUNT INCREASED [None]
